FAERS Safety Report 5781213-3 (Version None)
Quarter: 2008Q2

REPORT INFORMATION
  Report Type: 
  Country: None (occurrence: None)
  Receive Date: 20080609
  Receipt Date: 20080529
  Transmission Date: 20081010
  Serious: Yes (Hospitalization)
  Sender: FDA-Public Use
  Company Number: 200813547

PATIENT
  Age: 64 Year
  Sex: Male
  Weight: 81.6475 kg

DRUGS (20)
  1. ZEMAIRA [Suspect]
     Indication: ALPHA-1 ANTI-TRYPSIN DEFICIENCY
     Dosage: 60 UG/KG Q1W; IV,
     Route: 042
     Dates: start: 20080430, end: 20080430
  2. ZEMAIRA [Suspect]
     Indication: ALPHA-1 ANTI-TRYPSIN DEFICIENCY
     Dosage: 60 UG/KG Q1W; IV,
     Route: 042
     Dates: start: 20080313
  3. ZEMAIRA [Suspect]
     Indication: ALPHA-1 ANTI-TRYPSIN DEFICIENCY
     Dosage: 60 UG/KG Q1W; IV,
     Route: 042
     Dates: start: 20080424
  4. ANTIBIOTICS [Concomitant]
  5. SINGULAIR [Concomitant]
  6. CELEBREX [Concomitant]
  7. LISINOPRIL [Concomitant]
  8. ADVAIR DISKUS 100/50 [Concomitant]
  9. FLOMAX [Concomitant]
  10. SPIRIVA [Concomitant]
  11. NIACIN [Concomitant]
  12. PROVIGIL [Concomitant]
  13. METAMUCIL /00029101/ [Concomitant]
  14. ASPIRIN [Concomitant]
  15. CVS GLUCOSAMINE AND CHONDROITIN [Concomitant]
  16. XOPENEX [Concomitant]
  17. THEOPHYLLINE [Concomitant]
  18. MULTIVITAMIN /00831701/ [Concomitant]
  19. OMEPRAZOLE [Concomitant]
  20. AF-LORATADINE [Concomitant]

REACTIONS (5)
  - BRONCHITIS [None]
  - CHRONIC OBSTRUCTIVE PULMONARY DISEASE [None]
  - CONDITION AGGRAVATED [None]
  - DYSPNOEA [None]
  - PNEUMONIA [None]
